FAERS Safety Report 5766059-4 (Version None)
Quarter: 2008Q2

REPORT INFORMATION
  Report Type: 
  Country: None (occurrence: None)
  Receive Date: 20080611
  Receipt Date: 20070620
  Transmission Date: 20081010
  Serious: No
  Sender: FDA-Public Use
  Company Number: US-BRISTOL-MYERS SQUIBB COMPANY-13783295

PATIENT
  Age: 68 Year
  Sex: Male
  Weight: 94 kg

DRUGS (3)
  1. MONOPRIL [Suspect]
     Indication: HYPERTENSION
     Dosage: 20MG FOR THE LAST 4-5 YRS.MONOPRIL THERAPY FOR THE LAST 5-8 YEARS
     Dates: start: 20030101
  2. ALLOPURINOL [Concomitant]
  3. METFORMIN HCL [Concomitant]

REACTIONS (3)
  - BLOOD PRESSURE INCREASED [None]
  - DRUG INEFFECTIVE [None]
  - VISION BLURRED [None]
